FAERS Safety Report 5584101-0 (Version None)
Quarter: 2008Q1

REPORT INFORMATION
  Report Type: 
  Country: None (occurrence: None)
  Receive Date: 20080108
  Receipt Date: 20080102
  Transmission Date: 20080703
  Serious: Yes (Hospitalization)
  Sender: FDA-Public Use
  Company Number: FR-BRISTOL-MYERS SQUIBB COMPANY-14032627

PATIENT
  Age: 58 Year
  Sex: Male

DRUGS (14)
  1. VASTEN TABS 20 MG [Suspect]
     Route: 048
     Dates: start: 20071001, end: 20071119
  2. LASILIX [Suspect]
     Dosage: FUROSEMIDE SOLUTION FOR INJECTION GIVEN INTRAVENOUSLY FROM NOV-2007 TO 21-NOV-2007.
     Route: 048
     Dates: start: 20071001, end: 20071101
  3. CORDARONE [Suspect]
     Indication: ATRIAL FLUTTER
     Dosage: 4 U TABS TAKEN FROM 14-NOV-2007 TO 18-NOV-2007, 19-NOV-2007 TO ONGOING.
     Route: 048
     Dates: start: 20071001, end: 20071113
  4. DIGOXIN [Suspect]
     Route: 048
     Dates: start: 20071001, end: 20071117
  5. PREVISCAN [Suspect]
     Route: 048
     Dates: start: 20071001, end: 20071117
  6. CARDENSIEL [Suspect]
     Route: 048
     Dates: start: 20071001, end: 20071117
  7. MEDIATOR [Concomitant]
     Route: 048
     Dates: start: 20071001, end: 20071118
  8. NOVONORM [Concomitant]
     Route: 048
     Dates: start: 20071001, end: 20071118
  9. PERINDOPRIL ERBUMINE [Concomitant]
     Route: 048
     Dates: start: 20071001, end: 20071116
  10. SEREVENT [Concomitant]
     Route: 055
     Dates: start: 20071001
  11. VENTOLIN [Concomitant]
     Dosage: 1 DOSAGE FORM = 6U
     Route: 055
     Dates: start: 20071001
  12. DOBUTAMINE HCL [Concomitant]
     Route: 042
     Dates: start: 20071115
  13. ACUPAN [Concomitant]
     Route: 042
     Dates: start: 20071117, end: 20071118
  14. SOLUDACTONE [Concomitant]
     Route: 042
     Dates: start: 20071113, end: 20071116

REACTIONS (1)
  - THROMBOCYTOPENIA [None]
